FAERS Safety Report 7015132-1 (Version None)
Quarter: 2010Q3

REPORT INFORMATION
  Report Type: 
  Country: None (occurrence: None)
  Receive Date: 20100927
  Receipt Date: 20100104
  Transmission Date: 20110219
  Serious: No
  Sender: FDA-Public Use
  Company Number: US-ASTRAZENECA-2010SE00370

PATIENT
  Age: 59 Year
  Sex: Female
  Weight: 54.4 kg

DRUGS (6)
  1. ARIMIDEX [Suspect]
     Indication: BREAST CANCER
     Route: 048
     Dates: start: 20090601
  2. CALCIUM [Concomitant]
  3. VITAMIN D [Concomitant]
  4. MULTI-VITAMINS [Concomitant]
  5. FISH OIL [Concomitant]
  6. XANAX [Concomitant]

REACTIONS (5)
  - ANORGASMIA [None]
  - ATROPHIC VULVOVAGINITIS [None]
  - BACK PAIN [None]
  - CYSTITIS [None]
  - DEPRESSION [None]
